FAERS Safety Report 7988443-0 (Version None)
Quarter: 2011Q4

REPORT INFORMATION
  Report Type: 
  Country: None (occurrence: None)
  Receive Date: 20111216
  Receipt Date: 20111212
  Transmission Date: 20120403
  Serious: Yes (Death)
  Sender: FDA-Public Use
  Company Number: US-ASTRAZENECA-2011SE56766

PATIENT
  Age: 50 Year
  Sex: Female

DRUGS (5)
  1. NARCOTICS  (UNKNOWN WHICH SPECIFIC AGENT) [Concomitant]
     Indication: PAIN
  2. BENZODIAZEPANES  (UNKNOWN WHICH SPECIFIC AGENT) [Concomitant]
  3. SEROQUEL [Suspect]
     Indication: INSOMNIA
     Route: 048
  4. PROTON PUMP INHIBITOR (UNKNOWN WHICH SPECIFIC AGENT) [Concomitant]
     Indication: ULCER HAEMORRHAGE
  5. LYRICA [Concomitant]
     Indication: PAIN

REACTIONS (1)
  - CARDIOMEGALY [None]
